FAERS Safety Report 8542561-7 (Version None)
Quarter: 2012Q3

REPORT INFORMATION
  Report Type: 
  Country: None (occurrence: None)
  Receive Date: 20120726
  Receipt Date: 20120719
  Transmission Date: 20120928
  Serious: Yes (Other)
  Sender: FDA-Public Use
  Company Number: NL-ABBOTT-11P-114-0859743-00

PATIENT
  Sex: Female
  Weight: 70 kg

DRUGS (1)
  1. LEUPROLIDE ACETATE [Suspect]
     Indication: ENDOMETRIOSIS
     Route: 058
     Dates: start: 20110729, end: 20110729

REACTIONS (20)
  - HEMIPLEGIA [None]
  - HEADACHE [None]
  - HOT FLUSH [None]
  - ARTHRALGIA [None]
  - MUSCULAR WEAKNESS [None]
  - CEREBROVASCULAR ACCIDENT [None]
  - HYPERHIDROSIS [None]
  - TINNITUS [None]
  - MENORRHAGIA [None]
  - UNEVALUABLE EVENT [None]
  - GASTROINTESTINAL DISORDER [None]
  - BREAST PAIN [None]
  - HIRSUTISM [None]
  - FLUID RETENTION [None]
  - MUSCLE SPASMS [None]
  - LYMPHADENOPATHY [None]
  - ABDOMINAL PAIN [None]
  - INSOMNIA [None]
  - INJECTION SITE REACTION [None]
  - URINARY INCONTINENCE [None]
